FAERS Safety Report 9703339 (Version 1)
Quarter: 2013Q4

REPORT INFORMATION
  Report Type: Report from Study
  Country: AT (occurrence: AT)
  Receive Date: 20131122
  Receipt Date: 20131122
  Transmission Date: 20140711
  Serious: Yes (Other)
  Sender: FDA-Public Use
  Company Number: PHHY2013AT133421

PATIENT
  Sex: 0

DRUGS (2)
  1. IMATINIB [Suspect]
     Dosage: 400 MG, UNK
  2. IMATINIB [Suspect]
     Dosage: 800 MG, UNK

REACTIONS (6)
  - Blood thyroid stimulating hormone increased [Unknown]
  - Hypothyroidism [Unknown]
  - Night sweats [Unknown]
  - Periorbital oedema [Unknown]
  - Leukopenia [Unknown]
  - Fatigue [Unknown]
